FAERS Safety Report 22069158 (Version 5)
Quarter: 2023Q2

REPORT INFORMATION
  Report Type: Spontaneous
  Country: IT (occurrence: IT)
  Receive Date: 20230307
  Receipt Date: 20230616
  Transmission Date: 20230721
  Serious: Yes (Hospitalization, Other)
  Sender: FDA-Public Use
  Company Number: IT-PHARMALEX-2023000127

PATIENT
  Age: 81 Year
  Sex: Male

DRUGS (7)
  1. OLMESARTAN MEDOXOMIL [Suspect]
     Active Substance: OLMESARTAN MEDOXOMIL
     Indication: Hypertension
     Dosage: UNK
     Route: 065
  2. RIVASTIGMINE [Suspect]
     Active Substance: RIVASTIGMINE
     Indication: Cognitive disorder
     Dosage: 9.5 MG, QD,9.5 MG (RENEWED EVERY 6 MONTHS)
     Route: 062
  3. RIVASTIGMINE [Suspect]
     Active Substance: RIVASTIGMINE
     Indication: Cerebrovascular disorder
     Dosage: 4.6 MILLIGRAM, QD
     Route: 065
  4. AMLODIPINE [Concomitant]
     Active Substance: AMLODIPINE BESYLATE
     Indication: Hypertension
     Dosage: 10 MILLIGRAM
     Route: 065
  5. AMLODIPINE [Concomitant]
     Active Substance: AMLODIPINE BESYLATE
     Dosage: UNK
     Route: 065
  6. ESCITALOPRAM [Concomitant]
     Active Substance: ESCITALOPRAM OXALATE
     Indication: Cognitive disorder
     Dosage: 10 MILLIGRAM (10 MG)
     Route: 065
  7. OLMESARTAN MEDOXOMIL [Concomitant]
     Active Substance: OLMESARTAN MEDOXOMIL
     Indication: Hypertension
     Dosage: UNK
     Route: 065

REACTIONS (7)
  - Electrolyte imbalance [Recovering/Resolving]
  - Hypokalaemia [Unknown]
  - Gastrointestinal infection [Unknown]
  - Acute kidney injury [Unknown]
  - Diarrhoea [Recovered/Resolved]
  - Product use in unapproved indication [Unknown]
  - Off label use [Unknown]
